FAERS Safety Report 5641104-5 (Version None)
Quarter: 2008Q1

REPORT INFORMATION
  Report Type: 
  Country: None (occurrence: None)
  Receive Date: 20080227
  Receipt Date: 20080221
  Transmission Date: 20080703
  Serious: Yes (Hospitalization)
  Sender: FDA-Public Use
  Company Number: FR-AVENTIS-200810751FR

PATIENT
  Age: 52 Year
  Sex: Male

DRUGS (3)
  1. TAXOTERE [Suspect]
     Route: 042
     Dates: start: 20070905, end: 20071030
  2. CISPLATIN [Suspect]
     Route: 042
     Dates: start: 20071030, end: 20071103
  3. FLUOROURACIL [Suspect]
     Dates: start: 20071030, end: 20071103

REACTIONS (1)
  - ACUTE FEBRILE NEUTROPHILIC DERMATOSIS [None]
